FAERS Safety Report 5625610-5 (Version None)
Quarter: 2008Q1

REPORT INFORMATION
  Report Type: 
  Country: None (occurrence: None)
  Receive Date: 20080214
  Receipt Date: 20080118
  Transmission Date: 20080703
  Serious: No
  Sender: FDA-Public Use
  Company Number: US-BAYER-200811802NA

PATIENT
  Age: 28 Year
  Sex: Female
  Weight: 66 kg

DRUGS (1)
  1. MIRENA [Suspect]
     Indication: CONTRACEPTION
     Route: 015
     Dates: start: 20071220

REACTIONS (5)
  - ABDOMINAL PAIN [None]
  - BACK PAIN [None]
  - JOINT RANGE OF MOTION DECREASED [None]
  - LIBIDO DECREASED [None]
  - METRORRHAGIA [None]
